FAERS Safety Report 19429256 (Version 1)
Quarter: 2021Q2

REPORT INFORMATION
  Report Type: Spontaneous
  Country: US (occurrence: US)
  Receive Date: 20210617
  Receipt Date: 20210617
  Transmission Date: 20210717
  Serious: No
  Sender: FDA-Public Use
  Company Number: US-PFIZER INC-2021672972

PATIENT
  Sex: Female

DRUGS (2)
  1. EFFEXOR XR [Suspect]
     Active Substance: VENLAFAXINE HYDROCHLORIDE
     Indication: HORMONE THERAPY
     Dosage: 150 MG
  2. EFFEXOR XR [Suspect]
     Active Substance: VENLAFAXINE HYDROCHLORIDE
     Indication: HYPERHIDROSIS

REACTIONS (6)
  - Off label use [Unknown]
  - Psychopathic personality [Unknown]
  - Aggression [Unknown]
  - Drug effective for unapproved indication [Unknown]
  - Withdrawal syndrome [Unknown]
  - Emotional disorder [Unknown]
